FAERS Safety Report 7242684-9 (Version None)
Quarter: 2011Q1

REPORT INFORMATION
  Report Type: 
  Country: None (occurrence: None)
  Receive Date: 20110114
  Receipt Date: 20110106
  Transmission Date: 20110831
  Serious: Yes (Hospitalization, Other)
  Sender: FDA-Public Use
  Company Number: 2011SP000069

PATIENT
  Age: 54 Year
  Sex: Female

DRUGS (2)
  1. PEGINTERFERON ALFA-2A [Suspect]
     Indication: HEPATITIS C
     Dosage: 180 MCG;QW
     Dates: start: 20080111, end: 20080820
  2. RIBAVIRIN [Suspect]
     Indication: HEPATITIS C
     Dosage: 1 GM;QD
     Dates: start: 20080111, end: 20080826

REACTIONS (3)
  - SARCOIDOSIS [None]
  - MYALGIA [None]
  - FATIGUE [None]
